FAERS Safety Report 8998072 (Version 1)
Quarter: 2013Q1

REPORT INFORMATION
  Report Type: Spontaneous
  Country: GB (occurrence: GB)
  Receive Date: 20130104
  Receipt Date: 20130104
  Transmission Date: 20140127
  Serious: Yes (Life-Threatening)
  Sender: FDA-Public Use
  Company Number: GB-TEVA-378261ISR

PATIENT
  Age: 99 Year
  Sex: Female

DRUGS (1)
  1. TRIMETHOPRIM [Suspect]
     Dosage: 400 MILLIGRAM DAILY;
     Route: 048
     Dates: start: 20121012, end: 20121027

REACTIONS (1)
  - Renal impairment [Unknown]
